FAERS Safety Report 8546876 (Version 4)
Quarter: 2013Q3

REPORT INFORMATION
  Report Type: Spontaneous
  Country: ZA (occurrence: ZA)
  Receive Date: 20120504
  Receipt Date: 20130712
  Transmission Date: 20140515
  Serious: Yes (Other)
  Sender: FDA-Public Use
  Company Number: PHHY2012ZA029055

PATIENT
  Age: 62 Year
  Sex: Male

DRUGS (10)
  1. CO-DIOVAN [Suspect]
     Indication: HYPERTENSION
     Dosage: 160 MG VALS AND UNKNOWN HCTZ
  2. CO-TAREG [Suspect]
     Indication: HYPERTENSION
     Dosage: 1 DF, DAILY (160 MG VALS AND 12.5 HYDRO)
     Dates: start: 201106
  3. AMLOC [Concomitant]
     Indication: HYPERTENSION
     Dosage: UNK
  4. METFORMIN [Concomitant]
     Dosage: 850 MG, BID
  5. SIMVASTATIN [Concomitant]
     Dosage: 10 MG, DAILY
  6. SPASMEND [Concomitant]
     Dosage: (150 MG MEPHENSIN AND 500 MG PARA)
  7. GEN-PAYNE [Concomitant]
     Dosage: 10 MG CODA, 200 MG IBO AND 250 MG PARA)
  8. XANOR [Concomitant]
     Indication: ANXIETY
     Dosage: UKN, EVERY SECOND OR THIRD NIGHT
  9. VOLTAREN [Concomitant]
     Dosage: 25 MG, BID
  10. MYPRODOL [Concomitant]

REACTIONS (8)
  - Diabetes mellitus [Unknown]
  - Blood glucose increased [Unknown]
  - Stress [Unknown]
  - Mass [Unknown]
  - Scab [Unknown]
  - Headache [Unknown]
  - Pruritus [Unknown]
  - Blood pressure increased [Unknown]
